FAERS Safety Report 8985951 (Version 5)
Quarter: 2013Q1

REPORT INFORMATION
  Report Type: Spontaneous
  Country: GB (occurrence: GB)
  Receive Date: 20121226
  Receipt Date: 20130129
  Transmission Date: 20140127
  Serious: Yes (Death, Hospitalization, Other)
  Sender: FDA-Public Use
  Company Number: GB-JNJFOC-20121208738

PATIENT
  Age: 58 Year
  Sex: Male
  Weight: 70 kg

DRUGS (31)
  1. DARUNAVIR [Suspect]
     Indication: HIV INFECTION
     Route: 048
     Dates: start: 20120816, end: 20120917
  2. DAPSONE [Suspect]
     Indication: PRODUCT USED FOR UNKNOWN INDICATION
     Route: 065
  3. DAPSONE [Suspect]
     Indication: PRODUCT USED FOR UNKNOWN INDICATION
     Route: 065
     Dates: start: 20120830, end: 20120910
  4. ABACAVIR [Suspect]
     Indication: HIV INFECTION
     Route: 048
     Dates: start: 20120816, end: 20120917
  5. ABACAVIR [Suspect]
     Indication: HIV INFECTION
     Route: 048
     Dates: start: 20121107
  6. KALETRA [Suspect]
     Indication: HIV INFECTION
     Route: 048
     Dates: start: 20121107
  7. KALETRA [Suspect]
     Indication: HIV INFECTION
     Route: 048
  8. KALETRA [Suspect]
     Indication: HIV INFECTION
     Route: 048
     Dates: start: 20121019
  9. RALTEGRAVIR [Interacting]
     Indication: HIV INFECTION
     Route: 048
     Dates: start: 20120816, end: 20120917
  10. RITONAVIR [Suspect]
     Indication: HIV INFECTION
     Route: 048
     Dates: start: 20120816, end: 20120917
  11. SEPTRIN [Suspect]
     Indication: PRODUCT USED FOR UNKNOWN INDICATION
     Route: 065
     Dates: start: 20120803, end: 20120830
  12. KIVEXA [Suspect]
     Indication: HIV INFECTION
     Route: 065
     Dates: start: 20121107
  13. KIVEXA [Suspect]
     Indication: HIV INFECTION
     Route: 065
     Dates: start: 20121109
  14. KIVEXA [Suspect]
     Indication: HIV INFECTION
     Route: 065
     Dates: start: 20120816, end: 20120919
  15. CLARITHROMYCIN [Suspect]
     Indication: PRODUCT USED FOR UNKNOWN INDICATION
     Route: 065
     Dates: start: 20121011
  16. ACICLOVIR [Concomitant]
     Indication: OPPORTUNISTIC INFECTION PROPHYLAXIS
     Route: 065
     Dates: start: 20121011
  17. ATORVASTATIN [Concomitant]
     Indication: PRODUCT USED FOR UNKNOWN INDICATION
     Route: 065
     Dates: start: 20120925
  18. AZITHROMYCIN [Concomitant]
     Indication: OPPORTUNISTIC INFECTION PROPHYLAXIS
     Route: 048
  19. AZITHROMYCIN [Concomitant]
     Indication: PYREXIA
     Route: 048
  20. BISOPROLOL [Concomitant]
     Indication: PRODUCT USED FOR UNKNOWN INDICATION
     Route: 065
  21. FLUCONAZOLE [Concomitant]
     Indication: OPPORTUNISTIC INFECTION PROPHYLAXIS
     Route: 065
     Dates: start: 20121011
  22. NIFEDIPINE [Concomitant]
     Indication: PRODUCT USED FOR UNKNOWN INDICATION
     Route: 065
     Dates: start: 20120628
  23. PIRITON [Concomitant]
     Indication: PRURITUS GENERALISED
     Route: 065
     Dates: start: 20120910
  24. PIRITON [Concomitant]
     Indication: RASH
     Route: 065
     Dates: start: 20120910
  25. PREDNISOLONE [Concomitant]
     Indication: PRODUCT USED FOR UNKNOWN INDICATION
     Route: 065
  26. PREDNISOLONE [Concomitant]
     Indication: PRODUCT USED FOR UNKNOWN INDICATION
     Route: 065
  27. PREDNISOLONE [Concomitant]
     Indication: PRODUCT USED FOR UNKNOWN INDICATION
     Route: 065
  28. PREDNISOLONE [Concomitant]
     Indication: PRODUCT USED FOR UNKNOWN INDICATION
     Route: 065
  29. PREDNISOLONE [Concomitant]
     Indication: PRODUCT USED FOR UNKNOWN INDICATION
     Route: 065
     Dates: start: 20121007
  30. RANITIDINE [Concomitant]
     Indication: PRODUCT USED FOR UNKNOWN INDICATION
     Dosage: 1 MONTH
     Route: 065
  31. CHLORPHENIRAMINE MALEATE [Concomitant]
     Indication: PRODUCT USED FOR UNKNOWN INDICATION
     Dosage: 1 MONTH
     Route: 065

REACTIONS (32)
  - Toxic epidermal necrolysis [Fatal]
  - Drug reaction with eosinophilia and systemic symptoms [Fatal]
  - Coronary artery disease [Unknown]
  - HIV associated nephropathy [Unknown]
  - Hepatic function abnormal [Unknown]
  - Renal impairment [Unknown]
  - Abdominal pain [Unknown]
  - Alanine aminotransferase abnormal [Unknown]
  - Blood alkaline phosphatase abnormal [Unknown]
  - C-reactive protein increased [Unknown]
  - Drug interaction [Unknown]
  - Oedema [Unknown]
  - Eosinophil count increased [Unknown]
  - Pyrexia [Unknown]
  - Pruritus generalised [Unknown]
  - Hypotension [Unknown]
  - Induration [Unknown]
  - Liver function test abnormal [Unknown]
  - Lymphocyte count increased [Unknown]
  - Rash maculo-papular [Unknown]
  - Metabolic acidosis [Unknown]
  - Nausea [Unknown]
  - Platelet count decreased [Unknown]
  - Rash [Not Recovered/Not Resolved]
  - Dermatitis [Unknown]
  - Skin exfoliation [Unknown]
  - Tachycardia [Unknown]
  - Thrombocytopenia [Unknown]
  - Malaise [Unknown]
  - Diarrhoea [Unknown]
  - Asthenia [Unknown]
  - White blood cell count increased [Unknown]
